FAERS Safety Report 6540504-9 (Version None)
Quarter: 2010Q1

REPORT INFORMATION
  Report Type: 
  Country: None (occurrence: None)
  Receive Date: 20100118
  Receipt Date: 20100107
  Transmission Date: 20100710
  Serious: Yes (Hospitalization)
  Sender: FDA-Public Use
  Company Number: US-BIOGENIDEC-2010BI000882

PATIENT
  Age: 43 Year
  Sex: Male
  Weight: 88 kg

DRUGS (14)
  1. TYSABRI [Suspect]
     Indication: MULTIPLE SCLEROSIS
     Route: 042
     Dates: start: 20090402
  2. ALTACE [Concomitant]
     Route: 048
  3. ASPIRIN [Concomitant]
     Route: 048
  4. BACOLFEN [Concomitant]
     Route: 048
  5. CRESTOR [Concomitant]
     Route: 048
  6. DARVOCET-N 100 [Concomitant]
     Route: 048
  7. ELAVIL [Concomitant]
     Route: 048
  8. FENOFIBRATE [Concomitant]
     Route: 048
  9. IBUPROFEN [Concomitant]
     Route: 048
  10. LEVOTHYROXINE SODIUM [Concomitant]
     Route: 048
  11. LOVAZA [Concomitant]
     Route: 048
  12. LYRICA [Concomitant]
     Route: 048
  13. TOPROL-XL [Concomitant]
     Route: 048
  14. ZOLOFT [Concomitant]
     Route: 048

REACTIONS (1)
  - ANGINA UNSTABLE [None]
